FAERS Safety Report 15323475 (Version 1)
Quarter: 2018Q3

REPORT INFORMATION
  Report Type: Spontaneous
  Country: MX (occurrence: MX)
  Receive Date: 20180827
  Receipt Date: 20180827
  Transmission Date: 20181010
  Serious: Yes (Hospitalization)
  Sender: FDA-Public Use
  Company Number: PHHY2018MX078813

PATIENT
  Age: 81 Year
  Sex: Male

DRUGS (5)
  1. ASPIRIN. [Suspect]
     Active Substance: ASPIRIN
     Indication: PRODUCT USED FOR UNKNOWN INDICATION
     Route: 065
  2. METFORMIN AND SITAGLIPTIN [Suspect]
     Active Substance: METFORMIN\SITAGLIPTIN
     Indication: PRODUCT USED FOR UNKNOWN INDICATION
     Route: 065
  3. HYDROCHLOROTHIAZIDE SANDOZ [Suspect]
     Active Substance: HYDROCHLOROTHIAZIDE
     Indication: PRODUCT USED FOR UNKNOWN INDICATION
     Route: 065
  4. CAPTOPRIL. [Suspect]
     Active Substance: CAPTOPRIL
     Indication: PRODUCT USED FOR UNKNOWN INDICATION
     Route: 065
  5. OMEPRAZOLE. [Suspect]
     Active Substance: OMEPRAZOLE
     Indication: PRODUCT USED FOR UNKNOWN INDICATION
     Route: 065

REACTIONS (7)
  - Vitamin B12 deficiency [Recovered/Resolved]
  - Disorientation [Recovering/Resolving]
  - Apraxia [Recovered/Resolved]
  - Indifference [Recovered/Resolved]
  - Apathy [Recovered/Resolved]
  - Gait disturbance [Recovered/Resolved]
  - Amnesia [Recovered/Resolved]
